FAERS Safety Report 13032128 (Version 1)
Quarter: 2016Q4

REPORT INFORMATION
  Report Type: Spontaneous
  Country: US (occurrence: US)
  Receive Date: 20161215
  Receipt Date: 20161215
  Transmission Date: 20170207
  Serious: Yes (Hospitalization, Other)
  Sender: FDA-Public Use
  Company Number: US-SAOL THERAPEUTICS-2016SAO01203

PATIENT
  Age: 22 Year
  Sex: Female

DRUGS (1)
  1. LIORESAL [Suspect]
     Active Substance: BACLOFEN
     Indication: CEREBRAL PALSY
     Dosage: 339 ?G, \DAY
     Route: 037

REACTIONS (2)
  - Drug dose omission [Recovered/Resolved]
  - Decubitus ulcer [Unknown]

NARRATIVE: CASE EVENT DATE: 201610
